FAERS Safety Report 5535171-7 (Version None)
Quarter: 2007Q4

REPORT INFORMATION
  Report Type: 
  Country: None (occurrence: None)
  Receive Date: 20071206
  Receipt Date: 20071129
  Transmission Date: 20080405
  Serious: Yes (Hospitalization)
  Sender: FDA-Public Use
  Company Number: DE-WYE-G00696807

PATIENT
  Age: 64 Year
  Sex: Female

DRUGS (3)
  1. VENLAFAXINE HCL [Suspect]
     Indication: MAJOR DEPRESSION
     Dosage: 75-150 MG PER DAY
     Route: 048
     Dates: end: 20070201
  2. VENLAFAXINE HCL [Suspect]
     Route: 048
     Dates: start: 20070101
  3. LITHIUM CARBONATE [Concomitant]
     Indication: MAJOR DEPRESSION
     Dosage: UNKNOWN
     Route: 048
     Dates: end: 20070201

REACTIONS (2)
  - BRADYARRHYTHMIA [None]
  - CONGESTIVE CARDIOMYOPATHY [None]
